FAERS Safety Report 6336347-1 (Version None)
Quarter: 2009Q3

REPORT INFORMATION
  Report Type: 
  Country: None (occurrence: None)
  Receive Date: 20090901
  Receipt Date: 20090825
  Transmission Date: 20100115
  Serious: Yes (Other)
  Sender: FDA-Public Use
  Company Number: AU-WYE-G04246409

PATIENT
  Age: 53 Year
  Sex: Male

DRUGS (1)
  1. EFFEXOR XR [Suspect]
     Indication: DEPRESSION
     Dosage: 225MG DAILY

REACTIONS (8)
  - AGGRESSION [None]
  - BIPOLAR DISORDER [None]
  - DECREASED INTEREST [None]
  - EMOTIONAL DISORDER [None]
  - HOSTILITY [None]
  - PARAESTHESIA [None]
  - SUICIDAL IDEATION [None]
  - VERBAL ABUSE [None]
